FAERS Safety Report 7900328-4 (Version None)
Quarter: 2011Q4

REPORT INFORMATION
  Report Type: 
  Country: None (occurrence: None)
  Receive Date: 20111108
  Receipt Date: 20111027
  Transmission Date: 20120403
  Serious: Yes (Life-Threatening, Hospitalization, Other)
  Sender: FDA-Public Use
  Company Number: DE-RANBAXY-2011RR-49998

PATIENT
  Age: 61 Year
  Sex: Male
  Weight: 109 kg

DRUGS (8)
  1. ALLOPURINOL AL 300 MG TABL ALIUD [Concomitant]
     Indication: HYPERURICAEMIA
     Dosage: 300 MG, QD
     Route: 048
     Dates: start: 20070101
  2. APSOMOL N, DOSIERAEROSOL, RIEMSER [Concomitant]
     Indication: CHRONIC OBSTRUCTIVE PULMONARY DISEASE
     Dosage: UNK
     Route: 055
     Dates: start: 20100701
  3. SIMVASTATIN 40 MG TABL NN [Concomitant]
     Indication: HYPERLIPIDAEMIA
     Dosage: 20 MG, QD
     Route: 048
     Dates: start: 20080101, end: 20110211
  4. METFORMIN 1000 MG FILMTABL, 1A-PHARMA [Concomitant]
     Indication: TYPE 2 DIABETES MELLITUS
     Dosage: 1000 MG, BID
     Route: 048
     Dates: start: 20080101
  5. SYMBICORT TURBOHALER 160/4.5 UG INH ASTRA ZENECA [Concomitant]
     Indication: CHRONIC OBSTRUCTIVE PULMONARY DISEASE
     Dosage: 1 DF, QD
     Route: 055
     Dates: start: 20100701
  6. CLARITHROMYCIN [Suspect]
     Indication: PNEUMONIA
     Dosage: 500 MG, BID
     Route: 048
     Dates: start: 20110128, end: 20110204
  7. DAFIRO HCT 10/320/25 MG FILMTABL NOVARTIS [Concomitant]
     Indication: HYPERTENSION
     Dosage: 1 DF, QD
     Route: 048
     Dates: start: 20101201
  8. NOVOMIX 30, FLEXPEN, NOVO NORDISK [Concomitant]
     Indication: TYPE 2 DIABETES MELLITUS
     Dosage: 50 IU, QD
     Route: 058
     Dates: start: 20100701, end: 20110211

REACTIONS (1)
  - RENAL FAILURE ACUTE [None]
